FAERS Safety Report 8262903-X (Version None)
Quarter: 2012Q2

REPORT INFORMATION
  Report Type: 
  Country: None (occurrence: None)
  Receive Date: 20120405
  Receipt Date: 20120329
  Transmission Date: 20120825
  Serious: Yes (Hospitalization)
  Sender: FDA-Public Use
  Company Number: JP-GLAXOSMITHKLINE-B0769992A

PATIENT
  Sex: Male

DRUGS (14)
  1. TRANSAMINE CAP [Concomitant]
     Dosage: 3IUAX PER DAY
     Route: 048
  2. LAMICTAL [Suspect]
     Indication: BIPOLAR DISORDER
     Dosage: 50MG PER DAY
     Route: 048
     Dates: start: 20111107
  3. ABILIFY [Concomitant]
     Dosage: 1IUAX PER DAY
     Route: 048
  4. VOLTAREN [Concomitant]
     Dosage: 1IUAX PER DAY
     Route: 048
  5. RUPOCK [Concomitant]
     Dosage: 3IUAX PER DAY
     Route: 048
  6. FLUNITRAZEPAM [Concomitant]
     Dosage: 3IUAX PER DAY
     Route: 048
  7. ROZEREM [Concomitant]
     Dosage: 2IUAX PER DAY
     Route: 048
  8. SALAZAC [Concomitant]
     Dosage: 1IUAX PER DAY
     Route: 048
  9. LAMICTAL [Suspect]
     Dosage: 100MG PER DAY
     Route: 048
     Dates: start: 20111209, end: 20111209
  10. PAXIL [Concomitant]
     Dosage: 2IUAX PER DAY
     Route: 048
  11. CRESTOR [Concomitant]
     Dosage: 1IUAX PER DAY
     Route: 048
  12. MIGLITOL [Concomitant]
     Dosage: 1IUAX PER DAY
     Route: 048
  13. ZOLPIDEM [Concomitant]
     Dosage: 2IUAX PER DAY
     Route: 048
  14. GRACEVIT [Concomitant]
     Dosage: 2IUAX PER DAY
     Route: 048

REACTIONS (7)
  - STEVENS-JOHNSON SYNDROME [None]
  - BLOOD ALKALINE PHOSPHATASE INCREASED [None]
  - C-REACTIVE PROTEIN INCREASED [None]
  - ASPARTATE AMINOTRANSFERASE INCREASED [None]
  - BLOOD LACTATE DEHYDROGENASE INCREASED [None]
  - GAMMA-GLUTAMYLTRANSFERASE INCREASED [None]
  - ALANINE AMINOTRANSFERASE INCREASED [None]
